FAERS Safety Report 4982214-5 (Version None)
Quarter: 2006Q2

REPORT INFORMATION
  Report Type: 
  Country: None (occurrence: None)
  Receive Date: 20060419
  Receipt Date: 20060328
  Transmission Date: 20061013
  Serious: Yes (Other)
  Sender: FDA-Public Use
  Company Number: US200603006902

PATIENT
  Age: 82 Year
  Sex: Male

DRUGS (4)
  1. HUMALOG PEN [Suspect]
     Indication: DIABETES MELLITUS
     Dosage: AS NEEDED
     Dates: start: 19970101
  2. HUMALOG PEN (HUMALOG PEN) [Concomitant]
  3. LANTUS [Concomitant]
  4. LIPRAM (PANCERLIPASE) [Concomitant]

REACTIONS (2)
  - PANCREATIC CARCINOMA [None]
  - PHARMACEUTICAL PRODUCT COMPLAINT [None]
